FAERS Safety Report 13981229 (Version 1)
Quarter: 2017Q3

REPORT INFORMATION
  Report Type: Spontaneous
  Country: US (occurrence: US)
  Receive Date: 20170915
  Receipt Date: 20170915
  Transmission Date: 20171128
  Serious: No
  Sender: FDA-Public Use
  Company Number: None

PATIENT
  Age: 0 Day
  Sex: Male
  Weight: .75 kg

DRUGS (2)
  1. INDOMETHACIN. [Suspect]
     Active Substance: INDOMETHACIN
     Indication: INTRAVENTRICULAR HAEMORRHAGE
     Route: 042
  2. INDOMETHACIN. [Suspect]
     Active Substance: INDOMETHACIN
     Indication: PROPHYLAXIS
     Route: 042

REACTIONS (1)
  - Hypoglycaemia [None]

NARRATIVE: CASE EVENT DATE: 20170517
